FAERS Safety Report 6335350-5 (Version None)
Quarter: 2009Q3

REPORT INFORMATION
  Report Type: 
  Country: None (occurrence: None)
  Receive Date: 20090831
  Receipt Date: 20090818
  Transmission Date: 20100115
  Serious: Yes (Hospitalization, Other)
  Sender: FDA-Public Use
  Company Number: US-ELI_LILLY_AND_COMPANY-US200908004726

PATIENT
  Age: 56 Year
  Sex: Female

DRUGS (5)
  1. CYMBALTA [Suspect]
     Dosage: UNK, DAILY (1/D)
     Route: 065
     Dates: start: 20080801, end: 20090610
  2. ZANTAC [Concomitant]
     Dosage: 150 MG, UNKNOWN
     Route: 065
  3. VALIUM [Concomitant]
     Dosage: 5 MG, 3/D
     Route: 065
  4. OXYCODONE [Concomitant]
     Dosage: 30 MG, OTHER
     Route: 065
  5. PHRENILIN [Concomitant]
     Dosage: UNK, AS NEEDED
     Route: 065

REACTIONS (2)
  - HEPATIC FAILURE [None]
  - UNRESPONSIVE TO STIMULI [None]
